FAERS Safety Report 6164981-0 (Version None)
Quarter: 2009Q2

REPORT INFORMATION
  Report Type: 
  Country: None (occurrence: None)
  Receive Date: 20090421
  Receipt Date: 20090421
  Transmission Date: 20091009
  Serious: Yes (Other)
  Sender: FDA-Public Use
  Company Number: None

PATIENT
  Age: 43 Year
  Sex: Female
  Weight: 51.2565 kg

DRUGS (1)
  1. LEXAPRO [Suspect]
     Indication: DEPRESSION
     Dosage: 1 TABLET 1X DAY PO
     Route: 048
     Dates: start: 20080210, end: 20080331

REACTIONS (4)
  - APHASIA [None]
  - DECREASED APPETITE [None]
  - HEADACHE [None]
  - NAUSEA [None]
